FAERS Safety Report 13973352 (Version 2)
Quarter: 2017Q4

REPORT INFORMATION
  Report Type: Spontaneous
  Country: US (occurrence: US)
  Receive Date: 20170914
  Receipt Date: 20171003
  Transmission Date: 20180321
  Serious: Yes (Life-Threatening, Hospitalization, Disabling, Other)
  Sender: FDA-Public Use
  Company Number: US-009507513-1709USA006449

PATIENT
  Sex: Male

DRUGS (3)
  1. BRIDION [Suspect]
     Active Substance: SUGAMMADEX
     Indication: NEUROMUSCULAR BLOCKADE REVERSAL
     Dosage: TITRATED OVER A 2 TO 3 HOUR PERIOD UP TO 16MG/PER KG MAXIMUM DOSE
     Route: 042
     Dates: start: 201707
  2. BRIDION [Suspect]
     Active Substance: SUGAMMADEX
     Dosage: 5 ML, UNK
     Route: 042
     Dates: start: 201707
  3. BRIDION [Suspect]
     Active Substance: SUGAMMADEX
     Dosage: 2 ML, UNK
     Route: 042
     Dates: start: 201707

REACTIONS (1)
  - Drug ineffective [Recovered/Resolved]

NARRATIVE: CASE EVENT DATE: 201707
